FAERS Safety Report 6908456-7 (Version None)
Quarter: 2010Q3

REPORT INFORMATION
  Report Type: 
  Country: None (occurrence: None)
  Receive Date: 20100805
  Receipt Date: 20100727
  Transmission Date: 20110219
  Serious: Yes (Other)
  Sender: FDA-Public Use
  Company Number: JP-JNJFOC-20100706593

PATIENT
  Sex: Female

DRUGS (12)
  1. CRAVIT [Suspect]
     Indication: PHARYNGITIS
     Route: 048
  2. CRAVIT [Suspect]
     Indication: ANTIBIOTIC PROPHYLAXIS
     Route: 048
  3. PELEX [Concomitant]
     Indication: PAIN PROPHYLAXIS
     Route: 048
  4. PELEX [Concomitant]
     Indication: INFLAMMATION
     Route: 048
  5. DASEN [Concomitant]
     Indication: ANTIINFLAMMATORY THERAPY
     Route: 048
  6. GASTROZEPIN [Concomitant]
     Indication: GASTRITIS PROPHYLAXIS
     Route: 048
  7. DEQUALINIUM CHLORIDE [Concomitant]
     Indication: TONSILLITIS
     Route: 048
  8. DEQUALINIUM CHLORIDE [Concomitant]
     Indication: PHARYNGITIS
     Route: 048
  9. ZITHROMAC [Concomitant]
     Indication: ANTIBIOTIC PROPHYLAXIS
     Route: 048
  10. ROZECLART [Concomitant]
     Indication: ANTIBIOTIC PROPHYLAXIS
     Route: 042
  11. MUCODYNE [Concomitant]
     Indication: ABSCESS
     Route: 048
  12. MUCODYNE [Concomitant]
     Indication: PRODUCTIVE COUGH
     Route: 048

REACTIONS (1)
  - ACUTE GENERALISED EXANTHEMATOUS PUSTULOSIS [None]
